FAERS Safety Report 15431300 (Version 1)
Quarter: 2018Q3

REPORT INFORMATION
  Report Type: Spontaneous
  Country: US (occurrence: US)
  Receive Date: 20180926
  Receipt Date: 20180926
  Transmission Date: 20181010
  Serious: No
  Sender: FDA-Public Use
  Company Number: US-SUNOVION-2018SUN003565

PATIENT
  Sex: Female

DRUGS (1)
  1. LATUDA [Suspect]
     Active Substance: LURASIDONE HYDROCHLORIDE
     Dosage: UNK
     Route: 048

REACTIONS (12)
  - Nausea [Unknown]
  - Tremor [Unknown]
  - Withdrawal syndrome [Unknown]
  - Back pain [Unknown]
  - Pain [Unknown]
  - Hyperhidrosis [Unknown]
  - Asthenia [Unknown]
  - Chromaturia [Unknown]
  - Mental disorder [Unknown]
  - Paranoia [Unknown]
  - Hallucination [Unknown]
  - Tongue discomfort [Unknown]
